FAERS Safety Report 7521644-4 (Version None)
Quarter: 2011Q2

REPORT INFORMATION
  Report Type: 
  Country: None (occurrence: None)
  Receive Date: 20110603
  Receipt Date: 20110520
  Transmission Date: 20111010
  Serious: Yes (Other)
  Sender: FDA-Public Use
  Company Number: BR-JNJFOC-20110600703

PATIENT
  Age: 35 Year
  Sex: Female
  Weight: 54 kg

DRUGS (2)
  1. LISTERINE WHITENING [Suspect]
     Indication: PRODUCT USED FOR UNKNOWN INDICATION
     Route: 048
     Dates: start: 20110519
  2. CLONAZEPAM [Concomitant]
     Indication: PRODUCT USED FOR UNKNOWN INDICATION
     Route: 065

REACTIONS (3)
  - PYREXIA [None]
  - OEDEMA MOUTH [None]
  - LYMPHADENOPATHY [None]
